FAERS Safety Report 7037169-9 (Version None)
Quarter: 2010Q4

REPORT INFORMATION
  Report Type: 
  Country: None (occurrence: None)
  Receive Date: 20101011
  Receipt Date: 20101001
  Transmission Date: 20110411
  Serious: Yes (Life-Threatening, Hospitalization)
  Sender: FDA-Public Use
  Company Number: NO-ROXANE LABORATORIES, INC.-2010-RO-01308RO

PATIENT
  Age: 75 Year
  Sex: Male

DRUGS (5)
  1. RAMIPRIL [Suspect]
     Indication: CARDIAC FAILURE
     Dosage: 10 MG
  2. METOPROLOL TARTRATE [Suspect]
     Indication: CARDIAC FAILURE
     Dosage: 100 MG
  3. DIGITOXIN [Suspect]
     Indication: CARDIAC FAILURE
     Dosage: 50 MCG
  4. SPIRONOLACTONE [Suspect]
     Indication: CARDIAC FAILURE
     Dosage: 25 MG
  5. BUMETANIDE [Suspect]
     Indication: CARDIAC FAILURE
     Dosage: 1.5 MG

REACTIONS (3)
  - CARDIOGENIC SHOCK [None]
  - HYPERKALAEMIA [None]
  - RENAL FAILURE ACUTE [None]
